FAERS Safety Report 5536690-X (Version None)
Quarter: 2007Q4

REPORT INFORMATION
  Report Type: 
  Country: None (occurrence: None)
  Receive Date: 20071206
  Receipt Date: 20070627
  Transmission Date: 20080405
  Serious: Yes (Other)
  Sender: FDA-Public Use
  Company Number: US-AMGEN-STX229283

PATIENT
  Sex: Male
  Weight: 93.1 kg

DRUGS (3)
  1. ENBREL [Suspect]
     Indication: RHEUMATOID ARTHRITIS
     Route: 058
     Dates: start: 20070319
  2. HUMIRA [Suspect]
     Dates: start: 20031001, end: 20051020
  3. HUMIRA [Suspect]
     Dates: start: 20051020, end: 20070201

REACTIONS (1)
  - HODGKIN'S DISEASE [None]
